FAERS Safety Report 19846583 (Version 1)
Quarter: 2021Q3

REPORT INFORMATION
  Report Type: Spontaneous
  Country: US (occurrence: US)
  Receive Date: 20210916
  Receipt Date: 20210916
  Transmission Date: 20211014
  Serious: Yes (Hospitalization)
  Sender: FDA-Public Use
  Company Number: None

PATIENT
  Age: 57 Year
  Sex: Female
  Weight: 62.9 kg

DRUGS (3)
  1. PERTUXUMAB [Suspect]
     Active Substance: PERTUZUMAB
     Dates: end: 20210804
  2. HERCEPTIN [Suspect]
     Active Substance: TRASTUZUMAB
     Dates: end: 20210804
  3. TAXOL [Suspect]
     Active Substance: PACLITAXEL
     Dates: end: 20210709

REACTIONS (7)
  - Chest discomfort [None]
  - Vomiting [None]
  - Breast haematoma [None]
  - Mastectomy [None]
  - Loss of consciousness [None]
  - Post procedural haematoma [None]
  - Venous haemorrhage [None]

NARRATIVE: CASE EVENT DATE: 20210826
